FAERS Safety Report 17362894 (Version 1)
Quarter: 2020Q1

REPORT INFORMATION
  Report Type: Spontaneous
  Country: PL (occurrence: PL)
  Receive Date: 20200203
  Receipt Date: 20200203
  Transmission Date: 20200409
  Serious: Yes (Other)
  Sender: FDA-Public Use
  Company Number: PL-MYLANLABS-2020M1011410

PATIENT
  Age: 80 Year
  Sex: Male

DRUGS (2)
  1. PACLITAXEL. [Suspect]
     Active Substance: PACLITAXEL
     Indication: SKIN CANCER
     Dosage: 50 MG/M2, QW (CYCLIC)
     Route: 065
  2. CARBOPLATIN. [Suspect]
     Active Substance: CARBOPLATIN
     Indication: SKIN CANCER
     Dosage: UNK (CYCLIC)
     Route: 065

REACTIONS (4)
  - Product use in unapproved indication [Unknown]
  - Skin toxicity [Unknown]
  - Neutropenia [Unknown]
  - Off label use [Unknown]
